FAERS Safety Report 25817608 (Version 1)
Quarter: 2025Q3

REPORT INFORMATION
  Report Type: Spontaneous
  Country: RU (occurrence: RU)
  Receive Date: 20250918
  Receipt Date: 20250918
  Transmission Date: 20251020
  Serious: Yes (Life-Threatening, Hospitalization)
  Sender: ALEXION PHARMACEUTICALS
  Company Number: RU-ASTRAZENECA-202509EAF013034RU

PATIENT
  Age: 6 Month
  Sex: Female

DRUGS (7)
  1. BUDESONIDE [Suspect]
     Active Substance: BUDESONIDE
     Indication: Dyspnoea
  2. BUDESONIDE [Suspect]
     Active Substance: BUDESONIDE
  3. AMOXICILLIN [Concomitant]
     Active Substance: AMOXICILLIN
     Indication: Bronchitis
     Route: 065
  4. CLAVULANIC ACID [Concomitant]
     Active Substance: CLAVULANIC ACID
     Route: 065
  5. INTERFERON ALFA NOS [Concomitant]
     Active Substance: INTERFERON ALFA-2A OR INTERFERON ALFA-2B
     Route: 065
  6. IPRATROPIUM BROMIDE [Concomitant]
     Active Substance: IPRATROPIUM BROMIDE
     Indication: Bronchitis
     Route: 065
  7. FENOTEROL [Concomitant]
     Active Substance: FENOTEROL
     Indication: Bronchitis
     Route: 065

REACTIONS (3)
  - Laryngitis [Unknown]
  - Drug ineffective [Unknown]
  - Medication error [Unknown]
